FAERS Safety Report 6714853-5 (Version None)
Quarter: 2010Q2

REPORT INFORMATION
  Report Type: 
  Country: None (occurrence: None)
  Receive Date: 20100506
  Receipt Date: 20100506
  Transmission Date: 20101027
  Serious: Yes (Hospitalization)
  Sender: FDA-Public Use
  Company Number: None

PATIENT
  Sex: Female
  Weight: 8.6183 kg

DRUGS (2)
  1. CHILDREN'S TYLENOL SUSPENSION [Suspect]
     Indication: PYREXIA
     Dosage: MULTIPLE PO
     Route: 048
  2. CHILDREN'S MOTRIN [Suspect]
     Indication: PAIN
     Dosage: MULTIPLE PO
     Route: 048

REACTIONS (5)
  - HEPATOMEGALY [None]
  - PRODUCT QUALITY ISSUE [None]
  - PYREXIA [None]
  - TRANSAMINASES INCREASED [None]
  - VOMITING [None]
